FAERS Safety Report 25922914 (Version 1)
Quarter: 2025Q4

REPORT INFORMATION
  Report Type: Spontaneous
  Country: US (occurrence: US)
  Receive Date: 20251015
  Receipt Date: 20251015
  Transmission Date: 20260117
  Serious: No
  Sender: TORRENT PHARMA INC.
  Company Number: US-TORRENT-00014560

PATIENT

DRUGS (2)
  1. RISPERIDONE [Suspect]
     Active Substance: RISPERIDONE
     Indication: Mental disorder
     Dosage: UNKNOWN
     Route: 065
  2. LITHIUM [Suspect]
     Active Substance: LITHIUM
     Indication: Mental disorder
     Dosage: UNKNOWN
     Route: 065

REACTIONS (1)
  - Adverse drug reaction [Unknown]
